FAERS Safety Report 26065943 (Version 1)
Quarter: 2025Q4

REPORT INFORMATION
  Report Type: Spontaneous
  Country: US (occurrence: US)
  Receive Date: 20251119
  Receipt Date: 20251119
  Transmission Date: 20260117
  Serious: No
  Sender: UPSHER SMITH LABORATORIES
  Company Number: US-UPSHER-SMITH LABORATORIES, LLC-20251001360

PATIENT
  Age: 13 Year
  Sex: Male

DRUGS (1)
  1. DEFLAZACORT [Suspect]
     Active Substance: DEFLAZACORT
     Indication: Product used for unknown indication
     Dosage: 45 MG, QD
     Route: 048

REACTIONS (2)
  - Nerve compression [Unknown]
  - Back injury [Unknown]

NARRATIVE: CASE EVENT DATE: 20251010
